FAERS Safety Report 8587386-1 (Version None)
Quarter: 2012Q3

REPORT INFORMATION
  Report Type: 
  Country: None (occurrence: None)
  Receive Date: 20120810
  Receipt Date: 20111026
  Transmission Date: 20120928
  Serious: No
  Sender: FDA-Public Use
  Company Number: US-ASTRAZENECA-2011SE64872

PATIENT
  Age: 49 Year
  Sex: Female

DRUGS (2)
  1. ZOLADEX [Suspect]
     Route: 058
  2. ARIMIDEX [Suspect]
     Route: 048

REACTIONS (1)
  - PAIN IN EXTREMITY [None]
